FAERS Safety Report 4314596-1 (Version None)
Quarter: 2004Q1

REPORT INFORMATION
  Report Type: 
  Country: None (occurrence: None)
  Receive Date: 20040308
  Receipt Date: 20040226
  Transmission Date: 20041129
  Serious: Yes (Hospitalization)
  Sender: FDA-Public Use
  Company Number: 200410221BVD

PATIENT
  Age: 65 Year
  Sex: Female

DRUGS (3)
  1. CIPROFLOXACIN [Suspect]
     Dosage: 1000 MG, TOTAL DAILY, ORAL
     Route: 048
  2. CIPROFLOXACIN [Suspect]
  3. CEPHALEXIN [Concomitant]

REACTIONS (4)
  - HYDRONEPHROSIS [None]
  - NEPHRITIS [None]
  - RENAL HAEMORRHAGE [None]
  - URETERIC STENOSIS [None]
